FAERS Safety Report 6653621-X (Version None)
Quarter: 2010Q1

REPORT INFORMATION
  Report Type: 
  Country: None (occurrence: None)
  Receive Date: 20100326
  Receipt Date: 20100317
  Transmission Date: 20100710
  Serious: Yes (Other)
  Sender: FDA-Public Use
  Company Number: PL-JNJFOC-20100306208

PATIENT
  Sex: Male
  Weight: 94 kg

DRUGS (8)
  1. REMICADE [Suspect]
     Indication: RHEUMATOID ARTHRITIS
     Route: 042
  2. METHOTREXATE [Concomitant]
     Indication: RHEUMATOID ARTHRITIS
  3. METYPRED [Concomitant]
     Indication: RHEUMATOID ARTHRITIS
  4. ACIDUM FOLICUM [Concomitant]
     Route: 048
  5. CONTROLOC [Concomitant]
     Route: 048
  6. PRESTARIUM [Concomitant]
     Indication: HYPERTENSION
     Route: 048
  7. TERTENSIF [Concomitant]
     Indication: HYPERTENSION
     Route: 048
  8. DICLOBERL [Concomitant]

REACTIONS (1)
  - TUBERCULOSIS [None]
